FAERS Safety Report 26079921 (Version 3)
Quarter: 2025Q4

REPORT INFORMATION
  Report Type: Report from Study
  Country: EU (occurrence: EU)
  Receive Date: 20251123
  Receipt Date: 20251222
  Transmission Date: 20260119
  Serious: Yes (Hospitalization)
  Sender: ABBVIE
  Company Number: EU-ABBVIE-6346741

PATIENT
  Age: 65 Year
  Sex: Female

DRUGS (3)
  1. FOSCARBIDOPA\FOSLEVODOPA [Suspect]
     Active Substance: FOSCARBIDOPA\FOSLEVODOPA
     Indication: Parkinson^s disease
     Dosage: CRN 0,33ML/H, CR 0,34ML/H, CRH 0,35ML/H, ED 0,15ML
     Route: 058
     Dates: start: 20250612, end: 2025
  2. FOSCARBIDOPA\FOSLEVODOPA [Suspect]
     Active Substance: FOSCARBIDOPA\FOSLEVODOPA
     Dosage: CRN 0,33ML/H, CR 0,34ML/H, CRH 0,35ML/H, ED 0,20ML.
     Route: 058
     Dates: start: 2025, end: 2025
  3. FOSCARBIDOPA\FOSLEVODOPA [Suspect]
     Active Substance: FOSCARBIDOPA\FOSLEVODOPA
     Dosage: CRN 0,33ML/H, CR 0,34ML/H, CRH 0,35ML/H, ED 0,15ML.
     Route: 058
     Dates: start: 2025, end: 20251214

REACTIONS (8)
  - Paranoia [Not Recovered/Not Resolved]
  - Muscle spasms [Recovering/Resolving]
  - Infusion site pain [Recovered/Resolved]
  - Infusion site induration [Not Recovered/Not Resolved]
  - Freezing phenomenon [Recovering/Resolving]
  - Delusion [Not Recovered/Not Resolved]
  - Hallucination [Not Recovered/Not Resolved]
  - Psychotic disorder [Unknown]

NARRATIVE: CASE EVENT DATE: 20250101
